FAERS Safety Report 13158639 (Version 1)
Quarter: 2017Q1

REPORT INFORMATION
  Report Type: Spontaneous
  Country: KZ (occurrence: KZ)
  Receive Date: 20170127
  Receipt Date: 20170127
  Transmission Date: 20170428
  Serious: Yes (Other)
  Sender: FDA-Public Use
  Company Number: KZ-JNJFOC-20170120150

PATIENT
  Sex: Female

DRUGS (3)
  1. VOCANAMET [Suspect]
     Active Substance: CANAGLIFLOZIN\METFORMIN HYDROCHLORIDE
     Indication: TYPE 2 DIABETES MELLITUS
     Dosage: DOSE: 50/1000 MG
     Route: 048
     Dates: start: 20161220, end: 20170120
  2. GLUKOFAG [Concomitant]
     Route: 065
  3. AMARYL [Concomitant]
     Active Substance: GLIMEPIRIDE
     Indication: TYPE 2 DIABETES MELLITUS
     Route: 065

REACTIONS (6)
  - Urine ketone body present [Unknown]
  - Cholecystitis [Unknown]
  - Chest discomfort [None]
  - Angina pectoris [Unknown]
  - Blood ketone body increased [None]
  - Palpitations [Unknown]

NARRATIVE: CASE EVENT DATE: 201701
